FAERS Safety Report 6787416-3 (Version None)
Quarter: 2010Q2

REPORT INFORMATION
  Report Type: 
  Country: None (occurrence: None)
  Receive Date: 20100623
  Receipt Date: 20070326
  Transmission Date: 20101027
  Serious: No
  Sender: FDA-Public Use
  Company Number: US-PFIZER INC-2007025039

PATIENT
  Sex: Female

DRUGS (2)
  1. DEPO-PROVERA SUSPENSION/INJ [Suspect]
     Dosage: FIRST INJECTION
  2. DEPO-PROVERA SUSPENSION/INJ [Suspect]
     Dosage: LAST INJECTION, 1ST CYCLE
     Dates: start: 20040101, end: 20040101

REACTIONS (4)
  - CRYING [None]
  - MOOD ALTERED [None]
  - PERSONALITY CHANGE [None]
  - THINKING ABNORMAL [None]
